FAERS Safety Report 5401089-3 (Version None)
Quarter: 2007Q3

REPORT INFORMATION
  Report Type: 
  Country: None (occurrence: None)
  Receive Date: 20070726
  Receipt Date: 20070716
  Transmission Date: 20080115
  Serious: Yes (Other)
  Sender: FDA-Public Use
  Company Number: TPA2007A01311

PATIENT
  Age: 67 Year
  Sex: Female
  Weight: 72.5755 kg

DRUGS (9)
  1. ROZEREM [Suspect]
     Indication: INSOMNIA
     Dosage: 8 MG, HS PRN, PER ORAL
     Route: 048
     Dates: start: 20070607, end: 20070613
  2. PREVACID [Concomitant]
  3. ASPIRIN [Concomitant]
  4. ULTRAM ER (TRAMADOL HYDROCHLORIDE) [Concomitant]
  5. FOLIC ACID/B12/B6 (VITAMIN B12 AND FOLIC ACID) [Concomitant]
  6. HYDROCHLOROTHIAZIDE [Concomitant]
  7. LIPITOR (ATORASTATIN CALCIUM) [Concomitant]
  8. LISINOPRIL [Concomitant]
  9. PROTONIX [Concomitant]

REACTIONS (5)
  - FEELING ABNORMAL [None]
  - IMPAIRED DRIVING ABILITY [None]
  - POLLAKIURIA [None]
  - POLYURIA [None]
  - SOMNOLENCE [None]
